FAERS Safety Report 7091322-7 (Version None)
Quarter: 2010Q4

REPORT INFORMATION
  Report Type: 
  Country: None (occurrence: None)
  Receive Date: 20101109
  Receipt Date: 20101104
  Transmission Date: 20110411
  Serious: Yes (Hospitalization, Congenital Anomaly)
  Sender: FDA-Public Use
  Company Number: A0662858A

PATIENT
  Sex: Male
  Weight: 5.9 kg

DRUGS (2)
  1. PAXIL [Suspect]
     Indication: DEPRESSION
     Dosage: 20MG PER DAY
     Dates: start: 19940101, end: 20060101
  2. PRENATAL VITAMINS [Concomitant]

REACTIONS (20)
  - ABNORMAL PALMAR/PLANTAR CREASES [None]
  - BICUSPID AORTIC VALVE [None]
  - CARDIAC DISORDER [None]
  - CLEFT PALATE [None]
  - COARCTATION OF THE AORTA [None]
  - CONGENITAL HYDRONEPHROSIS [None]
  - DEVELOPMENTAL DELAY [None]
  - DRUG EXPOSURE DURING PREGNANCY [None]
  - EATING DISORDER [None]
  - HYPOCALCAEMIA [None]
  - HYPOGLYCAEMIA [None]
  - HYPOPLASTIC LEFT HEART SYNDROME [None]
  - INGUINAL HERNIA [None]
  - KABUKI MAKE-UP SYNDROME [None]
  - LEFT ATRIAL HYPERTROPHY [None]
  - LEFT VENTRICULAR HYPERTROPHY [None]
  - LOW SET EARS [None]
  - PTERYGIUM COLLI [None]
  - SPEECH DISORDER DEVELOPMENTAL [None]
  - TOOTH EROSION [None]
